FAERS Safety Report 7812962-0 (Version None)
Quarter: 2011Q4

REPORT INFORMATION
  Report Type: 
  Country: None (occurrence: None)
  Receive Date: 20111013
  Receipt Date: 20111011
  Transmission Date: 20120403
  Serious: Yes (Death)
  Sender: FDA-Public Use
  Company Number: JP-PFIZER INC-2011202108

PATIENT
  Age: 88 Year
  Sex: Female
  Weight: 54 kg

DRUGS (5)
  1. CEFTRIAXONE SODIUM [Suspect]
     Indication: INTERSTITIAL LUNG DISEASE
     Dosage: 1 G, 1X/DAY
     Route: 042
     Dates: start: 20110829, end: 20110830
  2. ZITHROMAX [Suspect]
     Indication: INTERSTITIAL LUNG DISEASE
     Dosage: 2 G, SINGLE
     Route: 048
     Dates: start: 20110829, end: 20110830
  3. METHYLPREDNISOLONE SODIUM SUCCINATE [Concomitant]
     Indication: INTERSTITIAL LUNG DISEASE
     Dosage: 0.5 G, 1X/DAY
     Route: 041
     Dates: start: 20110902, end: 20110902
  4. MEROPENEM [Concomitant]
     Indication: INTERSTITIAL LUNG DISEASE
     Dosage: 0.5 G, 3X/DAY
     Route: 041
     Dates: start: 20110831, end: 20110902
  5. ELASPOL [Concomitant]
     Indication: ACUTE RESPIRATORY DISTRESS SYNDROME
     Dosage: 250 MG, 1X/DAY
     Route: 041
     Dates: start: 20110831, end: 20110902

REACTIONS (3)
  - DIARRHOEA [None]
  - ACCIDENTAL OVERDOSE [None]
  - PNEUMONIA [None]
